FAERS Safety Report 6131703-9 (Version None)
Quarter: 2009Q1

REPORT INFORMATION
  Report Type: 
  Country: None (occurrence: None)
  Receive Date: 20090325
  Receipt Date: 20090318
  Transmission Date: 20090719
  Serious: Yes (Hospitalization)
  Sender: FDA-Public Use
  Company Number: GR-ABBOTT-09P-066-0563166-00

PATIENT
  Age: 54 Year
  Sex: Female
  Weight: 69.5 kg

DRUGS (12)
  1. ZEMPLAR [Suspect]
     Indication: HYPERPARATHYROIDISM SECONDARY
     Route: 042
     Dates: start: 20080110
  2. MIRCERA [Concomitant]
     Indication: ANAEMIA
     Route: 042
     Dates: start: 20080419
  3. VENOFER [Concomitant]
     Indication: ANAEMIA
     Dosage: 1/2 VIAL PER WEEK
     Route: 042
     Dates: start: 20080207
  4. NEUROBION [Concomitant]
     Indication: VITAMIN SUPPLEMENTATION
     Route: 042
     Dates: start: 20050101
  5. INTELECTA [Concomitant]
     Indication: VITAMIN SUPPLEMENTATION
     Route: 042
     Dates: start: 20050101
  6. INNOHEP [Concomitant]
     Indication: ANTICOAGULANT THERAPY
     Route: 042
  7. RENAGEL [Concomitant]
     Indication: HYPERPHOSPHATAEMIA
     Route: 048
     Dates: start: 20050101
  8. LESCOL [Concomitant]
     Indication: HYPERLIPIDAEMIA
     Route: 048
     Dates: start: 20050101
  9. PLAVIX [Concomitant]
     Indication: ANTICOAGULANT THERAPY
     Route: 048
     Dates: start: 20050101
  10. DIOVAN [Concomitant]
     Indication: HYPERTENSION
     Route: 048
     Dates: start: 20070101
  11. LOBIVON [Concomitant]
     Indication: HYPERTENSION
     Route: 048
     Dates: start: 20070101
  12. AMLOPEN [Concomitant]
     Indication: HYPERTENSION
     Route: 048
     Dates: start: 20080807

REACTIONS (1)
  - RESPIRATORY TRACT INFECTION [None]
